FAERS Safety Report 8432230-6 (Version None)
Quarter: 2012Q2

REPORT INFORMATION
  Report Type: 
  Country: None (occurrence: None)
  Receive Date: 20120613
  Receipt Date: 20120602
  Transmission Date: 20120825
  Serious: Yes (Hospitalization)
  Sender: FDA-Public Use
  Company Number: US-BRISTOL-MYERS SQUIBB COMPANY-16656928

PATIENT
  Age: 69 Year
  Sex: Female
  Weight: 104 kg

DRUGS (6)
  1. ORENCIA [Suspect]
     Indication: RHEUMATOID ARTHRITIS
     Dosage: LAST DOSE ON:AUG2010
     Route: 042
     Dates: start: 20100101
  2. MORPHINE [Concomitant]
  3. VITAMIN TAB [Concomitant]
  4. PERCOCET [Concomitant]
  5. METHOTREXATE [Suspect]
  6. PREDNISONE TAB [Concomitant]

REACTIONS (5)
  - CARDIAC DISORDER [None]
  - COMA [None]
  - FEELING COLD [None]
  - BODY TEMPERATURE INCREASED [None]
  - DYSPNOEA [None]
